FAERS Safety Report 10803708 (Version 2)
Quarter: 2015Q2

REPORT INFORMATION
  Report Type: Spontaneous
  Country: FR (occurrence: FR)
  Receive Date: 20150217
  Receipt Date: 20150529
  Transmission Date: 20150821
  Serious: Yes (Death, Other)
  Sender: FDA-Public Use
  Company Number: FR-GLAXOSMITHKLINE INC.-FR2015GSK018381

PATIENT
  Age: 14 Year
  Sex: Male

DRUGS (4)
  1. DEPAKINE [Interacting]
     Active Substance: VALPROATE SODIUM
     Indication: EPILEPSY
     Dosage: 1 DF(INJECTION), UNK
     Route: 042
     Dates: start: 20141115, end: 20141115
  2. KEPPRA [Concomitant]
     Active Substance: LEVETIRACETAM
     Dosage: UNK
     Route: 048
     Dates: start: 201408, end: 201411
  3. URBANYL [Concomitant]
     Active Substance: CLOBAZAM
     Dosage: UNK
     Route: 048
     Dates: start: 201408, end: 201411
  4. LAMICTAL [Suspect]
     Active Substance: LAMOTRIGINE
     Indication: EPILEPSY
     Dosage: 200 MG, Z
     Route: 048
     Dates: start: 201411

REACTIONS (5)
  - Rash erythematous [Unknown]
  - Pyrexia [Unknown]
  - Encephalopathy [Fatal]
  - Drug interaction [Unknown]
  - Hepatocellular injury [Unknown]

NARRATIVE: CASE EVENT DATE: 20141115
